FAERS Safety Report 6891376-4 (Version None)
Quarter: 2010Q3

REPORT INFORMATION
  Report Type: 
  Country: None (occurrence: None)
  Receive Date: 20100731
  Receipt Date: 20060628
  Transmission Date: 20110219
  Serious: No
  Sender: FDA-Public Use
  Company Number: US-PFIZER INC-2006082347

PATIENT
  Sex: Female
  Weight: 65.77 kg

DRUGS (6)
  1. DEPO-MEDROL [Suspect]
     Indication: DERMATITIS CONTACT
     Route: 030
     Dates: start: 20060627
  2. WELLBUTRIN [Concomitant]
     Indication: DEPRESSION
     Route: 065
  3. WELLBUTRIN [Concomitant]
     Indication: ATTENTION DEFICIT/HYPERACTIVITY DISORDER
  4. PROVIGIL [Concomitant]
     Indication: NARCOLEPSY
     Route: 065
  5. SYNTHROID [Concomitant]
     Indication: THYROID OPERATION
     Route: 065
  6. CORTICOSTEROIDS [Concomitant]
     Indication: OSTEOARTHRITIS
     Route: 050

REACTIONS (1)
  - SWELLING FACE [None]
